FAERS Safety Report 23007869 (Version 2)
Quarter: 2023Q4

REPORT INFORMATION
  Report Type: Spontaneous
  Country: ES (occurrence: ES)
  Receive Date: 20230929
  Receipt Date: 20231004
  Transmission Date: 20240109
  Serious: Yes (Death, Other)
  Sender: FDA-Public Use
  Company Number: ES-drreddys-LIT/SPN/23/0176724

PATIENT
  Age: 65 Year
  Sex: Female

DRUGS (2)
  1. IMATINIB [Suspect]
     Active Substance: IMATINIB
     Indication: Vulval cancer stage III
     Dosage: UNK
     Route: 065
  2. NIVOLUMAB [Suspect]
     Active Substance: NIVOLUMAB
     Indication: Vulval cancer
     Dosage: UNK
     Route: 065

REACTIONS (4)
  - Death [Fatal]
  - Vulval cancer stage III [Unknown]
  - Neoplasm progression [Unknown]
  - Drug ineffective [Unknown]
